FAERS Safety Report 6045041-6 (Version None)
Quarter: 2009Q1

REPORT INFORMATION
  Report Type: 
  Country: None (occurrence: None)
  Receive Date: 20090121
  Receipt Date: 20090115
  Transmission Date: 20090719
  Serious: Yes (Death)
  Sender: FDA-Public Use
  Company Number: US-BRISTOL-MYERS SQUIBB COMPANY-14473169

PATIENT
  Age: 69 Year
  Sex: Female

DRUGS (11)
  1. METFORMIN HCL [Suspect]
     Route: 048
  2. PRAVASTATIN SODIUM [Suspect]
     Route: 048
  3. SERTRALINE [Suspect]
  4. NIFEDIPINE [Suspect]
  5. GLIPIZIDE [Suspect]
  6. GLYBURIDE [Suspect]
  7. MECLIZINE [Suspect]
  8. BACLOFEN [Suspect]
  9. CLONIDINE [Suspect]
  10. METOPROLOL [Suspect]
  11. ENALAPRIL [Suspect]

REACTIONS (1)
  - DRUG TOXICITY [None]
